FAERS Safety Report 8870348 (Version 2)
Quarter: 2013Q2

REPORT INFORMATION
  Report Type: Spontaneous
  Country: US (occurrence: None)
  Receive Date: 20120426
  Receipt Date: 20120703
  Transmission Date: 20140414
  Serious: No
  Sender: FDA-Public Use
  Company Number: PHEH2012US004547

PATIENT
  Sex: Female

DRUGS (1)
  1. GILENYA [Suspect]
     Indication: MULTIPLE SCLEROSIS
     Route: 048
     Dates: start: 20120124, end: 20120218

REACTIONS (5)
  - Pain in extremity [None]
  - Fatigue [None]
  - Gait disturbance [None]
  - Muscle spasms [None]
  - Burning sensation [None]
